FAERS Safety Report 9656101 (Version 1)
Quarter: 2013Q4

REPORT INFORMATION
  Report Type: Spontaneous
  Country: ZA (occurrence: ZA)
  Receive Date: 20131030
  Receipt Date: 20131030
  Transmission Date: 20140711
  Serious: Yes (Other)
  Sender: FDA-Public Use
  Company Number: PHHY2013ZA120062

PATIENT
  Age: 19 Year
  Sex: Male
  Weight: 42 kg

DRUGS (5)
  1. LEPONEX [Suspect]
     Indication: ABNORMAL BEHAVIOUR
     Dosage: 25 MG, BID
     Route: 048
     Dates: start: 20071120, end: 20080108
  2. LEPONEX [Suspect]
     Dosage: 50 MG, TID
     Route: 048
     Dates: start: 20090708
  3. LEPONEX [Suspect]
     Dosage: 100 MG, UNK
     Dates: end: 20090713
  4. CARBAMAZEPINE [Concomitant]
     Indication: ABNORMAL BEHAVIOUR
     Dosage: 400 MG, BID
     Route: 048
     Dates: start: 2004
  5. ZUCLOPENTHIXOL [Concomitant]
     Indication: ABNORMAL BEHAVIOUR
     Dosage: 200 MG, UNK
     Dates: start: 2004

REACTIONS (2)
  - Lymphocyte count decreased [Recovered/Resolved]
  - White blood cell count decreased [Recovered/Resolved]
